FAERS Safety Report 7667380-5 (Version None)
Quarter: 2011Q3

REPORT INFORMATION
  Report Type: 
  Country: None (occurrence: None)
  Receive Date: 20110806
  Receipt Date: 20110302
  Transmission Date: 20111222
  Serious: No
  Sender: FDA-Public Use
  Company Number: US-ABBOTT-11P-163-0708525-00

PATIENT
  Sex: Male
  Weight: 98.972 kg

DRUGS (2)
  1. NIASPAN [Suspect]
     Indication: BLOOD CHOLESTEROL INCREASED
     Dates: start: 20110202
  2. UNKNOWN ANTIBIOTIC [Concomitant]
     Indication: BLOOD URINE PRESENT

REACTIONS (1)
  - HEADACHE [None]
